FAERS Safety Report 15372927 (Version 1)
Quarter: 2018Q3

REPORT INFORMATION
  Report Type: Spontaneous
  Country: FR (occurrence: FR)
  Receive Date: 20180912
  Receipt Date: 20180912
  Transmission Date: 20181010
  Serious: Yes (Hospitalization)
  Sender: FDA-Public Use
  Company Number: FR-TEVA-2018-FR-953761

PATIENT
  Age: 22 Year
  Sex: Male

DRUGS (7)
  1. PARACETAMOL [Suspect]
     Active Substance: ACETAMINOPHEN
     Indication: PAIN
     Dosage: SI BESOIN
     Route: 048
     Dates: start: 20180801
  2. BILASKA [Suspect]
     Active Substance: BILASTINE
     Indication: HYPERSENSITIVITY
     Dosage: 0?0?1
     Route: 048
     Dates: start: 2015
  3. VENTOLINE [Suspect]
     Active Substance: ALBUTEROL
     Indication: ASTHMA
     Dosage: SI BESOIN
     Route: 055
     Dates: start: 2015
  4. SERETIDE [Suspect]
     Active Substance: FLUTICASONE PROPIONATE\SALMETEROL XINAFOATE
     Indication: ASTHMA
     Dosage: 0?0?1
     Route: 055
     Dates: start: 2015
  5. SINGULAIR [Suspect]
     Active Substance: MONTELUKAST SODIUM
     Indication: ASTHMA
     Dosage: 10 MG LE SOIR
     Route: 055
     Dates: start: 2015, end: 20180809
  6. AMOXICILLINE [Suspect]
     Active Substance: AMOXICILLIN
     Indication: TOOTH EXTRACTION
     Dosage: 1?0?1
     Route: 048
     Dates: start: 20180801, end: 20180807
  7. CELESTENE [Suspect]
     Active Substance: BETAMETHASONE
     Indication: TOOTH EXTRACTION
     Route: 048
     Dates: start: 20180801, end: 20180803

REACTIONS (1)
  - Pancreatitis [Recovering/Resolving]

NARRATIVE: CASE EVENT DATE: 20180809
